FAERS Safety Report 5636126-4 (Version None)
Quarter: 2008Q1

REPORT INFORMATION
  Report Type: 
  Country: None (occurrence: None)
  Receive Date: 20080219
  Receipt Date: 20080131
  Transmission Date: 20080703
  Serious: Yes (Death)
  Sender: FDA-Public Use
  Company Number: 8020891

PATIENT
  Age: 29 Year
  Sex: Male

DRUGS (4)
  1. KEPPRA [Suspect]
     Dosage: 750 MG 2/D PO
     Route: 048
     Dates: start: 20060801, end: 20060903
  2. VALPROATE SODIUM [Concomitant]
  3. ANHYDROL [Concomitant]
  4. ACETAMINOPHEN [Concomitant]

REACTIONS (8)
  - ARTERIOSCLEROSIS [None]
  - BRAIN OEDEMA [None]
  - DRUG DOSE OMISSION [None]
  - DRUG LEVEL BELOW THERAPEUTIC [None]
  - FALL [None]
  - HEAD INJURY [None]
  - PULMONARY OEDEMA [None]
  - SUDDEN UNEXPLAINED DEATH IN EPILEPSY [None]
